FAERS Safety Report 18149448 (Version 10)
Quarter: 2021Q2

REPORT INFORMATION
  Report Type: Other
  Country: IL (occurrence: IL)
  Receive Date: 20200814
  Receipt Date: 20210611
  Transmission Date: 20210717
  Serious: Yes (Other)
  Sender: FDA-Public Use
  Company Number: IL-ROCHE-2623704

PATIENT
  Age: 37 Year
  Sex: Male

DRUGS (3)
  1. ALECENSA [Suspect]
     Active Substance: ALECTINIB HYDROCHLORIDE
     Route: 048
     Dates: start: 202003
  2. ALECENSA [Suspect]
     Active Substance: ALECTINIB HYDROCHLORIDE
     Indication: NON-SMALL CELL LUNG CANCER
     Route: 048
     Dates: start: 20200506
  3. ZINNAT [Concomitant]
     Active Substance: CEFUROXIME

REACTIONS (14)
  - Abdominal pain [Recovered/Resolved]
  - Blood bilirubin increased [Not Recovered/Not Resolved]
  - Diarrhoea [Recovered/Resolved]
  - Constipation [Not Recovered/Not Resolved]
  - Back pain [Recovered/Resolved]
  - Rhinitis [Recovered/Resolved]
  - Haemoptysis [Recovered/Resolved]
  - Pneumonitis [Recovered/Resolved]
  - Pneumonia [Recovered/Resolved]
  - Rhinorrhoea [Recovered/Resolved]
  - Abdominal pain [Not Recovered/Not Resolved]
  - Gastrointestinal viral infection [Recovered/Resolved]
  - Productive cough [Recovered/Resolved]
  - Dysgeusia [Not Recovered/Not Resolved]

NARRATIVE: CASE EVENT DATE: 202005
